FAERS Safety Report 17198439 (Version 1)
Quarter: 2019Q4

REPORT INFORMATION
  Report Type: Spontaneous
  Country: ES (occurrence: ES)
  Receive Date: 20191225
  Receipt Date: 20191225
  Transmission Date: 20200122
  Serious: Yes (Death, Hospitalization)
  Sender: FDA-Public Use
  Company Number: ES-ACCORD-167211

PATIENT
  Age: 81 Year
  Sex: Male

DRUGS (1)
  1. CAPECITABINE ACCORD [Suspect]
     Active Substance: CAPECITABINE
     Indication: COLORECTAL CANCER
     Dosage: STRENGTH 500 MG FILM-COATED TABLETS EFG 120 TABLETS, 2500MG/24H
     Route: 048
     Dates: start: 20190819

REACTIONS (6)
  - Enteritis [Fatal]
  - Diarrhoea [Fatal]
  - Dehydration [Fatal]
  - Nausea [Fatal]
  - Asthenia [Fatal]
  - Thrombocytopenia [Fatal]

NARRATIVE: CASE EVENT DATE: 20191003
